FAERS Safety Report 4985168-0 (Version None)
Quarter: 2006Q1

REPORT INFORMATION
  Report Type: 
  Country: None (occurrence: None)
  Receive Date: 20060309
  Receipt Date: 20050615
  Transmission Date: 20060701
  Serious: Yes (Other)
  Sender: FDA-Public Use
  Company Number: 407971

PATIENT

DRUGS (4)
  1. ACCUTANE [Suspect]
     Indication: ACNE
     Dates: start: 19950615, end: 20050315
  2. AMNESTEEM [Suspect]
     Indication: ACNE
     Dosage: 40 MG DAILY
     Dates: start: 20050315, end: 20050615
  3. DIFFERIN [Concomitant]
  4. ORAL CONTRACEPTIVE PILL (ORAL CONTRACEPTIVE NOS) [Concomitant]

REACTIONS (2)
  - NO ADVERSE EFFECT [None]
  - PREGNANCY [None]
